FAERS Safety Report 8282703-4 (Version None)
Quarter: 2012Q2

REPORT INFORMATION
  Report Type: 
  Country: None (occurrence: None)
  Receive Date: 20120413
  Receipt Date: 20120404
  Transmission Date: 20120825
  Serious: Yes (Hospitalization, Other)
  Sender: FDA-Public Use
  Company Number: GB-ROCHE-1056986

PATIENT
  Age: 64 Year
  Sex: Female

DRUGS (13)
  1. PIPERACILLIN AND TAZOBACTAM [Concomitant]
  2. WARFARIN SODIUM [Concomitant]
  3. LANSOPRAZOLE [Concomitant]
  4. CALCIUM CARBONATE [Concomitant]
  5. PREDNISOLONE [Concomitant]
  6. FUROSEMIDE [Concomitant]
  7. ACTEMRA [Suspect]
     Indication: RHEUMATOID ARTHRITIS
     Route: 042
     Dates: start: 20110616
  8. CANDESARTAN CILEXETIL [Concomitant]
  9. ERGOCALCIFEROL [Concomitant]
  10. IBANDRONATE SODIUM [Concomitant]
  11. ACETAMINOPHEN [Concomitant]
  12. AZATHIOPRINE [Concomitant]
  13. DIHYDROCODEINE BITARTRATE INJ [Concomitant]

REACTIONS (3)
  - ABDOMINAL PAIN [None]
  - MUSCULOSKELETAL PAIN [None]
  - SEPSIS [None]
